FAERS Safety Report 8585800-9 (Version None)
Quarter: 2012Q3

REPORT INFORMATION
  Report Type: 
  Country: None (occurrence: None)
  Receive Date: 20120810
  Receipt Date: 20120802
  Transmission Date: 20120928
  Serious: Yes (Life-Threatening)
  Sender: FDA-Public Use
  Company Number: JP-009507513-1208JPN002976

PATIENT

DRUGS (3)
  1. ACTOS [Concomitant]
     Dosage: UNK
     Dates: start: 20100416, end: 20111022
  2. SITAGLIPTIN PHOSPHATE [Suspect]
     Indication: TYPE 2 DIABETES MELLITUS
     Dosage: 50 MG, QD
     Route: 048
     Dates: start: 20100416, end: 20111022
  3. AMARYL [Concomitant]
     Dosage: UNK
     Dates: start: 20100416, end: 20111022

REACTIONS (1)
  - LUNG NEOPLASM MALIGNANT [None]
